FAERS Safety Report 9687818 (Version 1)
Quarter: 2013Q4

REPORT INFORMATION
  Report Type: Spontaneous
  Country: US (occurrence: US)
  Receive Date: 20131114
  Receipt Date: 20131114
  Transmission Date: 20140711
  Serious: Yes (Other)
  Sender: FDA-Public Use
  Company Number: US-RB-059828-13

PATIENT
  Age: 39 Year
  Sex: Female

DRUGS (3)
  1. DELSYM ADULT ORANGE [Suspect]
     Indication: PRODUCT USED FOR UNKNOWN INDICATION
     Dosage: 3 DOSES 10 ML
     Route: 048
     Dates: start: 20131110
  2. PAXIL [Concomitant]
     Indication: DEPRESSION
  3. ENBREL [Concomitant]
     Indication: RHEUMATOID ARTHRITIS

REACTIONS (3)
  - Hallucination [Not Recovered/Not Resolved]
  - Unevaluable event [Not Recovered/Not Resolved]
  - Dizziness [Not Recovered/Not Resolved]
